FAERS Safety Report 4580970-1 (Version None)
Quarter: 2005Q1

REPORT INFORMATION
  Report Type: 
  Country: None (occurrence: None)
  Receive Date: 20050214
  Receipt Date: 20040708
  Transmission Date: 20050727
  Serious: No
  Sender: FDA-Public Use
  Company Number: US-GLAXOSMITHKLINE-A0517425A

PATIENT
  Age: 44 Year
  Sex: Male

DRUGS (2)
  1. LAMICTAL [Suspect]
     Indication: BIPOLAR DISORDER
     Dosage: 25 PER DAY
     Route: 048
     Dates: start: 20040707
  2. ANTIHYPERTENSIVES [Concomitant]

REACTIONS (2)
  - DIZZINESS [None]
  - FATIGUE [None]
